FAERS Safety Report 5849861-X (Version None)
Quarter: 2008Q3

REPORT INFORMATION
  Report Type: 
  Country: None (occurrence: None)
  Receive Date: 20080818
  Receipt Date: 20080818
  Transmission Date: 20090109
  Serious: No
  Sender: FDA-Public Use
  Company Number: None

PATIENT
  Age: 32 Year
  Sex: Female
  Weight: 65.7716 kg

DRUGS (1)
  1. NUVARING [Suspect]
     Indication: CONTRACEPTION
     Dosage: USED MONTHLY
     Dates: start: 20060101, end: 20060501

REACTIONS (4)
  - DYSPAREUNIA [None]
  - FEAR [None]
  - PELVIC PAIN [None]
  - VULVOVAGINAL BURNING SENSATION [None]
